FAERS Safety Report 14480749 (Version 1)
Quarter: 2018Q1

REPORT INFORMATION
  Report Type: Spontaneous
  Country: IT (occurrence: IT)
  Receive Date: 20180202
  Receipt Date: 20180202
  Transmission Date: 20180509
  Serious: Yes (Hospitalization, Other)
  Sender: FDA-Public Use
  Company Number: IT-IMPAX LABORATORIES, INC-2018-IPXL-00295

PATIENT
  Age: 65 Year
  Sex: Male

DRUGS (3)
  1. GLYBURIDE. [Suspect]
     Active Substance: GLYBURIDE
     Indication: TYPE 2 DIABETES MELLITUS
     Dosage: UNK
     Route: 065
  2. METFORMIN HYDROCHLORIDE ER [Suspect]
     Active Substance: METFORMIN HYDROCHLORIDE
     Indication: TYPE 2 DIABETES MELLITUS
     Dosage: UNK
     Route: 065
  3. ACARBOSE. [Suspect]
     Active Substance: ACARBOSE
     Indication: TYPE 2 DIABETES MELLITUS
     Dosage: UNK
     Route: 065

REACTIONS (13)
  - Septic shock [Recovered/Resolved]
  - Biopsy kidney abnormal [Unknown]
  - Respiratory failure [Recovered/Resolved]
  - Pancreatitis chronic [Unknown]
  - Escherichia urinary tract infection [Unknown]
  - Anuria [Recovered/Resolved]
  - Acute kidney injury [Recovering/Resolving]
  - Chronic kidney disease [Not Recovered/Not Resolved]
  - Hyperoxaluria [Unknown]
  - Renal tubular necrosis [Recovering/Resolving]
  - Hypotension [Recovered/Resolved]
  - Pancreatic failure [Unknown]
  - Lactic acidosis [Recovered/Resolved]
